FAERS Safety Report 7737411-2 (Version None)
Quarter: 2011Q3

REPORT INFORMATION
  Report Type: 
  Country: None (occurrence: None)
  Receive Date: 20110908
  Receipt Date: 20110901
  Transmission Date: 20111222
  Serious: Yes (Other)
  Sender: FDA-Public Use
  Company Number: US-ABBOTT-11P-163-0851178-00

PATIENT
  Sex: Female
  Weight: 59.02 kg

DRUGS (4)
  1. HUMIRA [Suspect]
     Indication: RHEUMATOID ARTHRITIS
     Dates: start: 20030101, end: 20110101
  2. HUMIRA [Suspect]
     Dates: start: 20110401
  3. PLAQUENIL [Concomitant]
     Indication: RHEUMATOID ARTHRITIS
  4. SYNTHROID [Concomitant]
     Indication: HYPOTHYROIDISM

REACTIONS (8)
  - ARTHRALGIA [None]
  - BUNION [None]
  - JOINT SWELLING [None]
  - HYPERTENSION [None]
  - DRUG EFFECT DECREASED [None]
  - FOOT DEFORMITY [None]
  - CATARACT [None]
  - CORNEAL SCAR [None]
